FAERS Safety Report 8949827 (Version 1)
Quarter: 2012Q4

REPORT INFORMATION
  Report Type: 
  Country: AU (occurrence: AU)
  Receive Date: 20121206
  Receipt Date: 20121206
  Transmission Date: 20130627
  Serious: Yes (Hospitalization, Other)
  Sender: FDA-Public Use
  Company Number: PHHY2012AU110178

PATIENT
  Sex: Male

DRUGS (1)
  1. STALEVO [Suspect]
     Dosage: 125 mg daily

REACTIONS (2)
  - Respiratory disorder [Recovering/Resolving]
  - Vomiting [Unknown]
